FAERS Safety Report 10677651 (Version 2)
Quarter: 2015Q1

REPORT INFORMATION
  Report Type: Spontaneous
  Country: AT (occurrence: AT)
  Receive Date: 20141229
  Receipt Date: 20150115
  Transmission Date: 20150720
  Serious: Yes (Other)
  Sender: FDA-Public Use
  Company Number: AT-AMGEN-AUTSP2014100786

PATIENT
  Age: 51 Year
  Sex: Female

DRUGS (8)
  1. EBETREXAT                          /00113801/ [Suspect]
     Active Substance: METHOTREXATE SODIUM
     Indication: POLYARTHRITIS
     Dosage: 10 MG, WEEKLY
     Route: 065
  2. AMLODIPIN                          /00972404/ [Concomitant]
     Dosage: 10 MG, 1X/DAY
  3. ENBREL [Suspect]
     Active Substance: ETANERCEPT
     Indication: PRODUCT USED FOR UNKNOWN INDICATION
     Dosage: 50 MG, WEEKLY
     Route: 065
     Dates: start: 201312, end: 201411
  4. FOLSAN [Concomitant]
     Active Substance: FOLIC ACID
     Dosage: 2 DF, WEEKLY
  5. ENBREL [Suspect]
     Active Substance: ETANERCEPT
     Dosage: UNK
     Route: 065
  6. FERRETAB                           /00023505/ [Concomitant]
     Dosage: UNK
  7. EBETREXAT                          /00113801/ [Suspect]
     Active Substance: METHOTREXATE SODIUM
     Indication: SACROILIITIS
     Dosage: UNK
     Route: 065
  8. PRAM                               /00582602/ [Concomitant]
     Dosage: 10 MG, 1X/DAY

REACTIONS (2)
  - Erythema [Unknown]
  - Malignant melanoma stage I [Unknown]

NARRATIVE: CASE EVENT DATE: 201409
